FAERS Safety Report 8357723-1 (Version None)
Quarter: 2012Q2

REPORT INFORMATION
  Report Type: 
  Country: None (occurrence: None)
  Receive Date: 20120514
  Receipt Date: 20120507
  Transmission Date: 20120825
  Serious: Yes (Hospitalization)
  Sender: FDA-Public Use
  Company Number: JP-VERTEX PHARMACEUTICALS INC.-AE-2012-006671

PATIENT
  Age: 64 Year
  Sex: Male

DRUGS (14)
  1. PEGINTERFERON ALFA-2B [Concomitant]
     Indication: HEPATITIS C
     Route: 051
     Dates: start: 20120309, end: 20120323
  2. NAUZELIN OD [Concomitant]
     Route: 048
     Dates: start: 20120313
  3. TELAVIC (TELAPREVIR) [Suspect]
     Route: 048
     Dates: start: 20120329
  4. REBETOL [Concomitant]
     Indication: HEPATITIS C
     Route: 048
     Dates: start: 20120309, end: 20120322
  5. REBETOL [Concomitant]
     Route: 048
     Dates: start: 20120323, end: 20120328
  6. ATELEC [Concomitant]
     Route: 048
     Dates: start: 20120312
  7. TELAVIC (TELAPREVIR) [Suspect]
     Indication: HEPATITIS C
     Route: 048
     Dates: start: 20120309, end: 20120328
  8. PEGINTERFERON ALFA-2B [Concomitant]
     Route: 051
     Dates: start: 20120329
  9. AMOBAN [Concomitant]
     Route: 048
     Dates: start: 20120307
  10. REBETOL [Concomitant]
     Route: 048
     Dates: start: 20120329
  11. LOXONIN [Concomitant]
     Route: 048
     Dates: start: 20120307
  12. EPADEL [Concomitant]
     Route: 048
     Dates: start: 20120309
  13. DOGMATYL [Concomitant]
     Route: 048
     Dates: start: 20120315
  14. FEBURIC [Concomitant]
     Route: 048
     Dates: start: 20120309

REACTIONS (1)
  - MALAISE [None]
